FAERS Safety Report 25582772 (Version 3)
Quarter: 2025Q4

REPORT INFORMATION
  Report Type: Report from Study
  Country: US (occurrence: US)
  Receive Date: 20250720
  Receipt Date: 20251015
  Transmission Date: 20260117
  Serious: Yes (Other)
  Sender: BAUSCH AND LOMB
  Company Number: US-BAUSCHBL-2025BNL012421

PATIENT
  Age: 83 Year
  Sex: Female

DRUGS (1)
  1. MIEBO [Suspect]
     Active Substance: PERFLUOROHEXYLOCTANE
     Indication: Product used for unknown indication
     Dosage: PATIENT WAS REPORTEDLY OVERUSING AT FIRST BUT THEN STATES THAT THEY GOT BETTER AT ADMIN
     Route: 047
     Dates: start: 20250707

REACTIONS (5)
  - Cataract operation [Unknown]
  - Intentional product use issue [Unknown]
  - Circumstance or information capable of leading to medication error [Unknown]
  - Product use issue [Unknown]
  - Product use complaint [Unknown]

NARRATIVE: CASE EVENT DATE: 20250701
